FAERS Safety Report 8376727-6 (Version None)
Quarter: 2012Q2

REPORT INFORMATION
  Report Type: 
  Country: None (occurrence: None)
  Receive Date: 20120522
  Receipt Date: 20120516
  Transmission Date: 20120825
  Serious: No
  Sender: FDA-Public Use
  Company Number: US-ASTRAZENECA-2011SE22706

PATIENT
  Age: 56 Year
  Sex: Male

DRUGS (6)
  1. SEROQUEL [Suspect]
     Route: 048
  2. SEROQUEL [Suspect]
     Route: 048
  3. SEROQUEL [Suspect]
     Indication: DEPRESSION
     Route: 048
     Dates: start: 20100701
  4. SEROQUEL [Suspect]
     Indication: ANXIETY
     Route: 048
     Dates: start: 20100701
  5. SEROQUEL [Suspect]
     Indication: BIPOLAR DISORDER
     Route: 048
     Dates: start: 20100701
  6. SEROQUEL [Suspect]
     Route: 048

REACTIONS (6)
  - MALAISE [None]
  - INTENTIONAL DRUG MISUSE [None]
  - IMPAIRED WORK ABILITY [None]
  - AMNESIA [None]
  - ULNAR NERVE INJURY [None]
  - ADVERSE EVENT [None]
